FAERS Safety Report 20950659 (Version 1)
Quarter: 2022Q2

REPORT INFORMATION
  Report Type: Spontaneous
  Country: RU (occurrence: RU)
  Receive Date: 20220613
  Receipt Date: 20220613
  Transmission Date: 20220720
  Serious: Yes (Other)
  Sender: FDA-Public Use
  Company Number: None

PATIENT
  Age: 72 Year
  Sex: Female
  Weight: 70 kg

DRUGS (8)
  1. CIPROFLOXACIN HYDROCHLORIDE [Suspect]
     Active Substance: CIPROFLOXACIN HYDROCHLORIDE
     Indication: Cystitis
     Route: 048
     Dates: start: 20220422, end: 20220425
  2. IRON POLYMALTOSE [Suspect]
     Active Substance: IRON POLYMALTOSE
     Indication: Anaemia
     Route: 048
     Dates: start: 20220423, end: 20220424
  3. VERAPAMIL [Concomitant]
     Active Substance: VERAPAMIL HYDROCHLORIDE
     Indication: Product used for unknown indication
     Route: 048
     Dates: start: 20220415
  4. Torasemide (Torasemide Canon) [Concomitant]
     Indication: Product used for unknown indication
     Route: 048
     Dates: start: 20220415
  5. Spironolactone (Veroshpiron) [Concomitant]
     Indication: Product used for unknown indication
     Route: 048
     Dates: start: 20220415
  6. Candesartan (Hyposart) [Concomitant]
     Indication: Product used for unknown indication
     Route: 048
     Dates: start: 20220415
  7. IBUPROFEN [Concomitant]
     Active Substance: IBUPROFEN
     Indication: Product used for unknown indication
     Route: 048
     Dates: start: 20220415
  8. Warfarin (Warfarin Nycomed) [Concomitant]
     Indication: Product used for unknown indication
     Route: 048
     Dates: start: 20220415

REACTIONS (2)
  - Oropharyngeal pain [Recovering/Resolving]
  - Rash pruritic [Recovering/Resolving]

NARRATIVE: CASE EVENT DATE: 20220424
